FAERS Safety Report 7811097-0 (Version None)
Quarter: 2011Q4

REPORT INFORMATION
  Report Type: 
  Country: None (occurrence: None)
  Receive Date: 20111011
  Receipt Date: 20110926
  Transmission Date: 20120403
  Serious: Yes (Hospitalization, Other)
  Sender: FDA-Public Use
  Company Number: DSJ-2011-03172

PATIENT
  Age: 75 Year
  Sex: Female

DRUGS (12)
  1. FLUITRAN (TRICHLORMETHIAZIDE) (TABLET) (TRICHLORMETHIAZIDE) [Suspect]
     Indication: PRODUCT USED FOR UNKNOWN INDICATION
     Dosage: 2 MG (2 MG, 1 IN 1 D), PER ORAL
     Route: 048
     Dates: start: 20110210, end: 20110210
  2. LANSOPRAZOLE [Concomitant]
  3. MINOCYCLINE HCL [Concomitant]
  4. LIPITOR [Concomitant]
  5. OLMESARTAN MEDOXOMIL [Suspect]
     Indication: HYPERTENSION
     Dosage: 20 MG, PER ORAL
     Route: 048
     Dates: end: 20110210
  6. PREDNISOLONE [Concomitant]
  7. CALBLOCK (AZELNIDIPINE) [Concomitant]
  8. RIDAURA [Concomitant]
  9. ETODOLAC [Concomitant]
  10. RIMATIL (BUCILLAMINE) [Concomitant]
  11. VIVIANT (BAZEDOXIFENE ACETATE) [Concomitant]
  12. POSTERISAN (HYDROCORTISONE)SUPPOSITORY [Concomitant]

REACTIONS (9)
  - ANAEMIA [None]
  - MOUTH ULCERATION [None]
  - FALL [None]
  - HYPONATRAEMIA [None]
  - DEPRESSED LEVEL OF CONSCIOUSNESS [None]
  - DECREASED APPETITE [None]
  - ACTIVITIES OF DAILY LIVING IMPAIRED [None]
  - MUSCULAR WEAKNESS [None]
  - GAIT DISTURBANCE [None]
